FAERS Safety Report 15919909 (Version 1)
Quarter: 2019Q1

REPORT INFORMATION
  Report Type: Spontaneous
  Country: US (occurrence: US)
  Receive Date: 20190205
  Receipt Date: 20190205
  Transmission Date: 20190417
  Serious: No
  Sender: FDA-Public Use
  Company Number: US-ROCHE-2145135

PATIENT
  Sex: Female

DRUGS (1)
  1. XOLAIR [Suspect]
     Active Substance: OMALIZUMAB
     Indication: ASTHMA
     Dosage: THE PATIENT RECEIVED 6TH DOSE IN JUN-2018 ;ONGOING: UNKNOWN
     Route: 058
     Dates: start: 201801

REACTIONS (2)
  - Rash erythematous [Unknown]
  - Throat irritation [Unknown]

NARRATIVE: CASE EVENT DATE: 201806
